FAERS Safety Report 10279828 (Version 1)
Quarter: 2014Q3

REPORT INFORMATION
  Report Type: Spontaneous
  Country: US (occurrence: None)
  Receive Date: 20140701
  Receipt Date: 20140701
  Transmission Date: 20150326
  Serious: Yes (Life-Threatening, Other)
  Sender: FDA-Public Use
  Company Number: None

PATIENT
  Age: 71 Year
  Sex: Female
  Weight: 53.07 kg

DRUGS (19)
  1. BIOTIN [Concomitant]
     Active Substance: BIOTIN
  2. HIBICLENS [Suspect]
     Active Substance: CHLORHEXIDINE GLUCONATE
     Indication: INFECTION PROPHYLAXIS
     Dosage: 4.0% CHKIRGEXUDUBE?3 SAMPLE PACKETS?ONCE A DAY FOR 5 DAYS?ON SKIN EXCEPT FACE + GENITALS
     Route: 061
     Dates: start: 20140604, end: 20140606
  3. GEMFIBROZIL. [Concomitant]
     Active Substance: GEMFIBROZIL
  4. AMLODIPINE [Concomitant]
     Active Substance: AMLODIPINE BESYLATE
  5. POTASSIUM [Concomitant]
     Active Substance: POTASSIUM
  6. HIBICLENS [Suspect]
     Active Substance: CHLORHEXIDINE GLUCONATE
     Dosage: 4.0% CHKIRGEXUDUBE?3 SAMPLE PACKETS?ONCE A DAY FOR 5 DAYS?ON SKIN EXCEPT FACE + GENITALS
     Route: 061
     Dates: start: 20140604, end: 20140606
  7. CLODRONATE [Concomitant]
     Active Substance: CLODRONATE DISODIUM
  8. SYNTHROID [Concomitant]
     Active Substance: LEVOTHYROXINE SODIUM
  9. FLUTICACONE [Concomitant]
  10. ADVAIR HFA [Concomitant]
     Active Substance: FLUTICASONE PROPIONATE\SALMETEROL XINAFOATE
  11. FELODIPINE. [Concomitant]
     Active Substance: FELODIPINE
  12. PROBIOTIC [Concomitant]
     Active Substance: PROBIOTICS NOS
  13. LANTUS INSULIN [Concomitant]
  14. CALCIUM + D [Concomitant]
     Active Substance: CALCIUM\VITAMIN D
  15. FISH OIL [Concomitant]
     Active Substance: FISH OIL
  16. METFORMIN [Concomitant]
     Active Substance: METFORMIN HYDROCHLORIDE
  17. NAPROXEN. [Concomitant]
     Active Substance: NAPROXEN
  18. ATORVASTATIN [Concomitant]
     Active Substance: ATORVASTATIN
  19. AQUAPHOR [Concomitant]
     Active Substance: PETROLATUM

REACTIONS (4)
  - Drug hypersensitivity [None]
  - Feeling hot [None]
  - Feeling abnormal [None]
  - Hallucination [None]

NARRATIVE: CASE EVENT DATE: 20140606
